FAERS Safety Report 6272537-4 (Version None)
Quarter: 2009Q3

REPORT INFORMATION
  Report Type: 
  Country: None (occurrence: None)
  Receive Date: 20090717
  Receipt Date: 20090706
  Transmission Date: 20100115
  Serious: Yes (Other)
  Sender: FDA-Public Use
  Company Number: PHHY2009FR21623

PATIENT
  Sex: Female

DRUGS (5)
  1. ACLASTA [Suspect]
     Dosage: 1 DF
     Dates: start: 20090514
  2. KARDEGIC [Concomitant]
     Dosage: 75 MG, UNK
  3. TENORMIN [Concomitant]
     Indication: HYPERTENSION
  4. COVERSYL [Concomitant]
     Indication: HYPERTENSION
  5. VASTAREL [Concomitant]
     Indication: HYPERTENSION

REACTIONS (9)
  - ANTERIOR CHAMBER DISORDER [None]
  - GLARE [None]
  - IRIDOCYCLITIS [None]
  - MACULAR OEDEMA [None]
  - PAPILLITIS [None]
  - PHOTOSENSITIVITY REACTION [None]
  - VISION BLURRED [None]
  - VISUAL ACUITY REDUCED [None]
  - VITRITIS [None]
